FAERS Safety Report 7275905-7 (Version None)
Quarter: 2011Q1

REPORT INFORMATION
  Report Type: 
  Country: None (occurrence: None)
  Receive Date: 20110204
  Receipt Date: 20110128
  Transmission Date: 20110831
  Serious: Yes (Hospitalization)
  Sender: FDA-Public Use
  Company Number: A0788954A

PATIENT
  Age: 47 Year
  Sex: Male
  Weight: 85.9 kg

DRUGS (1)
  1. AVANDIA [Suspect]
     Dosage: 8MG TWICE PER DAY
     Route: 048
     Dates: start: 19990101, end: 20020101

REACTIONS (6)
  - CORONARY ARTERY DISEASE [None]
  - LYMPHOMA [None]
  - ACUTE CORONARY SYNDROME [None]
  - CARDIAC FAILURE CONGESTIVE [None]
  - ISCHAEMIC CARDIOMYOPATHY [None]
  - ACUTE MYOCARDIAL INFARCTION [None]
